FAERS Safety Report 6883806-9 (Version None)
Quarter: 2010Q3

REPORT INFORMATION
  Report Type: 
  Country: None (occurrence: None)
  Receive Date: 20100729
  Receipt Date: 20100726
  Transmission Date: 20110219
  Serious: Yes (Hospitalization)
  Sender: FDA-Public Use
  Company Number: FR-BRISTOL-MYERS SQUIBB COMPANY-15209018

PATIENT
  Age: 84 Year
  Sex: Male

DRUGS (8)
  1. APROVEL [Suspect]
     Route: 048
     Dates: end: 20100629
  2. EXELON [Suspect]
     Route: 048
     Dates: start: 20090101, end: 20100630
  3. AMLOR [Suspect]
     Route: 048
     Dates: end: 20100629
  4. DAKTARIN [Concomitant]
  5. FORLAX [Concomitant]
  6. KEPPRA [Concomitant]
  7. PLAVIX [Concomitant]
  8. TAHOR [Concomitant]

REACTIONS (3)
  - BRADYCARDIA [None]
  - HYPOGLYCAEMIA [None]
  - PSYCHOMOTOR RETARDATION [None]
